FAERS Safety Report 11519664 (Version 1)
Quarter: 2015Q3

REPORT INFORMATION
  Report Type: Spontaneous
  Country: GB (occurrence: GB)
  Receive Date: 20150918
  Receipt Date: 20150918
  Transmission Date: 20151125
  Serious: Yes (Death, Hospitalization, Other)
  Sender: FDA-Public Use
  Company Number: GB-AUROBINDO-AUR-APL-2015-08000

PATIENT
  Age: 18 Year
  Sex: Female

DRUGS (2)
  1. METRONIDAZOLE. [Suspect]
     Active Substance: METRONIDAZOLE
     Dosage: 15 MG/KG,FOLLOWED BY 7.5 MG/KG EVERY 8 HOURS
     Route: 042
  2. METRONIDAZOLE. [Suspect]
     Active Substance: METRONIDAZOLE
     Indication: DIARRHOEA
     Dosage: EVERY 8 HOURS
     Route: 065

REACTIONS (14)
  - Death [Fatal]
  - Shock [Unknown]
  - Alanine aminotransferase increased [Unknown]
  - Blood glucose increased [Unknown]
  - Metabolic acidosis [Unknown]
  - Activated partial thromboplastin time prolonged [Unknown]
  - Toxicity to various agents [Fatal]
  - Gamma-glutamyltransferase increased [Unknown]
  - Hepatic enzyme increased [Unknown]
  - General physical health deterioration [Unknown]
  - Blood bilirubin abnormal [Unknown]
  - Aspartate aminotransferase increased [Unknown]
  - International normalised ratio increased [Unknown]
  - Blood alkaline phosphatase increased [Unknown]
